FAERS Safety Report 7418362-X (Version None)
Quarter: 2011Q2

REPORT INFORMATION
  Report Type: 
  Country: None (occurrence: None)
  Receive Date: 20110415
  Receipt Date: 20110404
  Transmission Date: 20111010
  Serious: Yes (Death)
  Sender: FDA-Public Use
  Company Number: B0706829A

PATIENT
  Sex: Male

DRUGS (10)
  1. PAXIL [Suspect]
     Indication: DEPRESSION
     Dosage: 20MG PER DAY
     Route: 048
     Dates: start: 20110228, end: 20110306
  2. MEROPEN [Concomitant]
     Route: 042
     Dates: start: 20110228, end: 20110309
  3. SLOWHEIM [Concomitant]
  4. GOODMIN [Concomitant]
  5. ROHYPNOL [Concomitant]
     Dosage: 1IUAX PER DAY
     Route: 048
     Dates: start: 20110301, end: 20110306
  6. NITRAZEPAM [Concomitant]
  7. SERENACE [Concomitant]
     Indication: RESTLESSNESS
     Dosage: 1IUAX PER DAY
     Dates: start: 20110228
  8. ROCEPHIN [Concomitant]
     Dosage: 2IUAX PER DAY
     Route: 042
     Dates: start: 20110225, end: 20110228
  9. SOL-MELCORT [Concomitant]
     Dosage: 2IUAX PER DAY
     Route: 042
     Dates: start: 20110228, end: 20110302
  10. MYSLEE [Concomitant]
     Indication: INSOMNIA
     Dosage: 1IUAX PER DAY
     Route: 048
     Dates: start: 20110228

REACTIONS (10)
  - BLOOD CREATINE PHOSPHOKINASE INCREASED [None]
  - NEUROLEPTIC MALIGNANT SYNDROME [None]
  - DEPRESSED LEVEL OF CONSCIOUSNESS [None]
  - WHITE BLOOD CELL COUNT INCREASED [None]
  - TONIC CONVULSION [None]
  - PYREXIA [None]
  - TREMOR [None]
  - C-REACTIVE PROTEIN INCREASED [None]
  - AGITATION [None]
  - COLD SWEAT [None]
